FAERS Safety Report 6100171-5 (Version None)
Quarter: 2009Q1

REPORT INFORMATION
  Report Type: 
  Country: None (occurrence: None)
  Receive Date: 20090302
  Receipt Date: 20090302
  Transmission Date: 20090719
  Serious: No
  Sender: FDA-Public Use
  Company Number: None

PATIENT
  Age: 38 Year
  Sex: Female
  Weight: 58.9676 kg

DRUGS (1)
  1. ZICAM SPRAY GEL [Suspect]
     Indication: NASOPHARYNGITIS
     Dosage: ONE ONCE NASAL
     Route: 045
     Dates: start: 20090222, end: 20090222

REACTIONS (6)
  - ANOSMIA [None]
  - BURNING SENSATION [None]
  - EAR PAIN [None]
  - EYE PAIN [None]
  - MIGRAINE [None]
  - PAIN [None]
